FAERS Safety Report 7946167-X (Version None)
Quarter: 2011Q4

REPORT INFORMATION
  Report Type: 
  Country: None (occurrence: None)
  Receive Date: 20111129
  Receipt Date: 20111122
  Transmission Date: 20120403
  Serious: Yes (Other)
  Sender: FDA-Public Use
  Company Number: JP-GLAXOSMITHKLINE-B0764963A

PATIENT
  Weight: 47 kg

DRUGS (1)
  1. ZOVIRAX [Suspect]
     Indication: HERPES ZOSTER
     Dosage: 1IUAX UNKNOWN
     Route: 058

REACTIONS (2)
  - DELIRIUM [None]
  - ENCEPHALITIS HERPES [None]
